FAERS Safety Report 7075382-5 (Version None)
Quarter: 2010Q4

REPORT INFORMATION
  Report Type: 
  Country: None (occurrence: None)
  Receive Date: 20101030
  Receipt Date: 20101005
  Transmission Date: 20110411
  Serious: No
  Sender: FDA-Public Use
  Company Number: US-WYE-H17109010

PATIENT
  Sex: Female
  Weight: 60.38 kg

DRUGS (10)
  1. PRISTIQ [Suspect]
     Indication: DEPRESSION
     Route: 048
     Dates: start: 20080801, end: 20100801
  2. PRISTIQ [Interacting]
     Dosage: STARTED TO TAPER 25 MG THEN 12.5 MG FOR 1-2 WEEKS
     Route: 048
     Dates: start: 20100801, end: 20100101
  3. PRISTIQ [Interacting]
     Dosage: RESTARTED LOW DOSE AND TO USE 1/4 TABLET UP TO A MONTH BEFORE STOPPING
     Dates: start: 20100901
  4. NABUMETONE [Interacting]
     Indication: PAIN
     Dosage: 750 MG UNSPECIFIED FREQUENCY
     Dates: start: 20100801
  5. MELOXICAM [Concomitant]
  6. TETRACYCLINE [Concomitant]
  7. VENTOLIN [Concomitant]
  8. FIORICET [Concomitant]
  9. HYDROCODONE BITARTRATE AND ACETAMINOPHEN [Interacting]
     Indication: PAIN
     Dosage: 5/500 MG UNSPECIFIED FREQUENCY
     Dates: start: 20100801
  10. HYDROCHLOROTHIAZIDE [Concomitant]

REACTIONS (9)
  - DIZZINESS [None]
  - DRUG INTERACTION [None]
  - DRUG WITHDRAWAL SYNDROME [None]
  - DYSARTHRIA [None]
  - INTENTIONAL DRUG MISUSE [None]
  - NAUSEA [None]
  - PAIN [None]
  - RIB FRACTURE [None]
  - WRONG TECHNIQUE IN DRUG USAGE PROCESS [None]
